FAERS Safety Report 5575660-2 (Version None)
Quarter: 2007Q4

REPORT INFORMATION
  Report Type: 
  Country: None (occurrence: None)
  Receive Date: 20071221
  Receipt Date: 20071217
  Transmission Date: 20080405
  Serious: Yes (Death, Hospitalization)
  Sender: FDA-Public Use
  Company Number: L07-ISR-06381-01

PATIENT
  Age: 19 Year
  Sex: Male

DRUGS (3)
  1. CITALOPRAM [Suspect]
     Dosage: 20 MG QD
  2. ZIPRASIDONE HCL [Suspect]
     Indication: SCHIZOPHRENIA
     Dosage: 140 MG QD
  3. QUETIAPINE [Concomitant]

REACTIONS (5)
  - ANHEDONIA [None]
  - COMPLETED SUICIDE [None]
  - DEPRESSION [None]
  - FEELING OF DESPAIR [None]
  - SOCIAL AVOIDANT BEHAVIOUR [None]
